FAERS Safety Report 8377085-3 (Version None)
Quarter: 2012Q2

REPORT INFORMATION
  Report Type: 
  Country: None (occurrence: None)
  Receive Date: 20120522
  Receipt Date: 20120510
  Transmission Date: 20120825
  Serious: No
  Sender: FDA-Public Use
  Company Number: US-ELI_LILLY_AND_COMPANY-US201204001979

PATIENT
  Sex: Female
  Weight: 45.351 kg

DRUGS (14)
  1. PLAVIX [Concomitant]
  2. METOPROLOL [Concomitant]
     Dosage: 50 MG, BID
  3. ASPIRIN [Concomitant]
  4. BACTROBAN [Concomitant]
  5. FORTEO [Suspect]
     Dosage: 20 UG, QD
     Route: 058
  6. LOMOTIL [Concomitant]
  7. LOVASTATIN [Concomitant]
  8. FORTEO [Suspect]
     Dosage: 20 UG, QD
     Route: 058
  9. AVAPRO [Concomitant]
     Dosage: 150 MG, QD
  10. LORTAB [Concomitant]
  11. IRON [Concomitant]
  12. FORTEO [Suspect]
     Indication: OSTEOPOROSIS
     Dosage: 20 UG, QD
     Route: 058
     Dates: start: 20110805
  13. GLIPIZIDE [Concomitant]
  14. INSULIN [Concomitant]

REACTIONS (1)
  - DIARRHOEA [None]
